FAERS Safety Report 9743019 (Version 4)
Quarter: 2014Q1

REPORT INFORMATION
  Report Type: Report from Study
  Country: US (occurrence: US)
  Receive Date: 20131210
  Receipt Date: 20140108
  Transmission Date: 20141002
  Serious: Yes (Hospitalization)
  Sender: FDA-Public Use
  Company Number: US-ACTELION-A-US2013-90984

PATIENT
  Age: 53 Year
  Sex: Female

DRUGS (11)
  1. VELETRI [Suspect]
     Indication: PULMONARY ARTERIAL HYPERTENSION
     Dosage: 47.2 NG/KG, PER MIN
     Route: 042
     Dates: start: 2012
  2. ADCIRCA [Concomitant]
     Dosage: 40 MG, UNK
  3. COUMADIN [Concomitant]
     Dosage: 5 MG, MONDAY THROUGH FRIDAY
  4. COUMADIN [Concomitant]
     Dosage: 2.5 MG, SATURDAY AND SUNDAY
  5. OXYGEN [Concomitant]
     Dosage: 4 L/MIN, UNK
  6. LASIX [Concomitant]
     Dosage: 100 MG, BID
  7. METOLAZONE [Concomitant]
     Dosage: 5 MG, UNK
  8. POTASSIUM [Concomitant]
     Dosage: 20 MEQ, UNK
  9. ALDACTONE [Concomitant]
     Dosage: 25 MG, UNK
  10. ZYRTEC [Concomitant]
     Dosage: 10 MG, QD
  11. PERCOCET [Concomitant]

REACTIONS (9)
  - Central venous catheterisation [Recovered/Resolved]
  - Device dislocation [Unknown]
  - Vomiting [Unknown]
  - Diarrhoea [Unknown]
  - Drug dose omission [Unknown]
  - Central venous catheterisation [Recovered/Resolved]
  - Device leakage [Recovered/Resolved]
  - Right ventricular failure [Recovered/Resolved]
  - Fluid overload [Recovered/Resolved]
